FAERS Safety Report 6623501-4 (Version None)
Quarter: 2010Q1

REPORT INFORMATION
  Report Type: 
  Country: None (occurrence: None)
  Receive Date: 20100310
  Receipt Date: 20091214
  Transmission Date: 20100710
  Serious: Yes (Other)
  Sender: FDA-Public Use
  Company Number: US-JNJFOC-20091007946

PATIENT
  Sex: Female

DRUGS (6)
  1. NUCYNTA [Suspect]
     Indication: ORTHOPEDIC PROCEDURE
     Route: 048
  2. ALTACE [Concomitant]
     Route: 065
  3. ASPIRIN [Concomitant]
     Route: 065
  4. LIPITOR [Concomitant]
     Route: 065
  5. SYNTHROID [Concomitant]
     Route: 065
  6. ARIXTRA [Concomitant]
     Route: 065

REACTIONS (2)
  - DEPRESSION [None]
  - SUICIDAL IDEATION [None]
